FAERS Safety Report 9434593 (Version 1)
Quarter: 2013Q3

REPORT INFORMATION
  Report Type: Spontaneous
  Country: US (occurrence: None)
  Receive Date: 20130731
  Receipt Date: 20130731
  Transmission Date: 20140515
  Serious: No
  Sender: FDA-Public Use
  Company Number: None

PATIENT
  Age: 61 Year
  Sex: Male

DRUGS (1)
  1. PREPOPIK [Suspect]
     Indication: COLONOSCOPY
     Dosage: 2 PACKET ONE PACKET AT 4 PM, SECOND AT 9PM BY MOUTH EACH PACKET MIXED WITH WATER.
     Route: 048
     Dates: start: 20130721, end: 20130721

REACTIONS (3)
  - Headache [None]
  - Nausea [None]
  - Vomiting [None]
